FAERS Safety Report 25497311 (Version 1)
Quarter: 2025Q3

REPORT INFORMATION
  Report Type: Spontaneous
  Country: BR (occurrence: BR)
  Receive Date: 20250701
  Receipt Date: 20250701
  Transmission Date: 20251021
  Serious: Yes (Other)
  Sender: NOVO NORDISK
  Company Number: BR-NOVOPROD-1466371

PATIENT
  Sex: Female

DRUGS (1)
  1. VAGIFEM [Suspect]
     Active Substance: ESTRADIOL
     Indication: Hormone therapy

REACTIONS (4)
  - Neoplasm [Unknown]
  - Blood oestrogen increased [Unknown]
  - Endometrial thickening [Unknown]
  - Condition aggravated [Unknown]
